FAERS Safety Report 10018072 (Version 1)
Quarter: 2014Q1

REPORT INFORMATION
  Report Type: Spontaneous
  Country: US (occurrence: US)
  Receive Date: 20140318
  Receipt Date: 20140318
  Transmission Date: 20141002
  Serious: No
  Sender: FDA-Public Use
  Company Number: US-BRISTOL-MYERS SQUIBB COMPANY-18915272

PATIENT
  Age: 77 Year
  Sex: Male
  Weight: 94.33 kg

DRUGS (8)
  1. ERBITUX [Suspect]
     Indication: LYMPHOMA
  2. LISINOPRIL [Concomitant]
  3. METFORMIN [Concomitant]
  4. LEVOTHYROXINE [Concomitant]
  5. CITALOPRAM [Concomitant]
  6. GEMFIBROZIL (INV) [Concomitant]
  7. PRILOSEC [Concomitant]
  8. DECADRON [Concomitant]

REACTIONS (6)
  - Pyrexia [Unknown]
  - Headache [Unknown]
  - Abdominal pain upper [Unknown]
  - Stress [Unknown]
  - Weight decreased [Unknown]
  - Acne [Unknown]
